FAERS Safety Report 6734422-0 (Version None)
Quarter: 2010Q2

REPORT INFORMATION
  Report Type: 
  Country: None (occurrence: None)
  Receive Date: 20100520
  Receipt Date: 20100512
  Transmission Date: 20101027
  Serious: Yes (Other)
  Sender: FDA-Public Use
  Company Number: GB-BAXTER-2010BH013160

PATIENT
  Sex: Female

DRUGS (2)
  1. LACTATED RINGER'S AND DEXTROSE 5% IN PLASTIC CONTAINER [Suspect]
     Indication: DRUG USE FOR UNKNOWN INDICATION
     Route: 042
     Dates: start: 20100501, end: 20100501
  2. LACTATED RINGER'S AND DEXTROSE 5% IN PLASTIC CONTAINER [Suspect]
     Indication: OFF LABEL USE
     Route: 042
     Dates: start: 20100501, end: 20100501

REACTIONS (3)
  - AIR EMBOLISM [None]
  - DEVICE MISUSE [None]
  - HYPOTENSION [None]
